FAERS Safety Report 17122328 (Version 2)
Quarter: 2019Q4

REPORT INFORMATION
  Report Type: Spontaneous
  Country: US (occurrence: US)
  Receive Date: 20191206
  Receipt Date: 20191206
  Transmission Date: 20200122
  Serious: No
  Sender: FDA-Public Use
  Company Number: US-ROCHE-2245294

PATIENT
  Age: 63 Year
  Sex: Female
  Weight: 46.3 kg

DRUGS (4)
  1. HERCEPTIN [Suspect]
     Active Substance: TRASTUZUMAB
     Indication: NEOPLASM PROPHYLAXIS
     Dosage: FOR 12 WEEKS
     Route: 042
     Dates: start: 20190108
  2. PACLITAXEL. [Concomitant]
     Active Substance: PACLITAXEL
     Indication: BREAST CANCER
     Route: 042
     Dates: start: 20190108
  3. LORAZEPAM. [Concomitant]
     Active Substance: LORAZEPAM
     Dosage: ONGOING:UNKNOWN
     Route: 065
     Dates: start: 20190108
  4. HERCEPTIN [Suspect]
     Active Substance: TRASTUZUMAB
     Route: 042

REACTIONS (3)
  - Palpitations [Recovered/Resolved]
  - Diarrhoea [Not Recovered/Not Resolved]
  - Supraventricular extrasystoles [Unknown]

NARRATIVE: CASE EVENT DATE: 20190110
